FAERS Safety Report 6566666-5 (Version None)
Quarter: 2010Q1

REPORT INFORMATION
  Report Type: 
  Country: None (occurrence: None)
  Receive Date: 20100202
  Receipt Date: 20100122
  Transmission Date: 20100710
  Serious: Yes (Death, Life-Threatening, Disabling)
  Sender: FDA-Public Use
  Company Number: US-ROCHE-681808

PATIENT
  Sex: Male
  Weight: 72.6 kg

DRUGS (11)
  1. BEVACIZUMAB [Suspect]
     Dosage: UNK
     Route: 065
     Dates: start: 20090520, end: 20091111
  2. GDC-0449 [Suspect]
     Dosage: 150 MG, QD
     Route: 048
     Dates: start: 20090522, end: 20091208
  3. GDC-0449 [Suspect]
     Dosage: 150 MG, QD
     Route: 048
     Dates: start: 20090522, end: 20091208
  4. FLUOROURACIL [Suspect]
     Dosage: UNK
     Route: 065
     Dates: start: 20090520, end: 20091111
  5. OXALIPLATIN [Suspect]
     Dosage: UNK
     Route: 065
     Dates: start: 20090520, end: 20091111
  6. MONOPRIL [Concomitant]
     Indication: DRUG USE FOR UNKNOWN INDICATION
     Dosage: 40 MG, QD
  7. FLOMAX [Concomitant]
     Indication: DRUG USE FOR UNKNOWN INDICATION
     Dosage: 0.4 MG, QD
  8. PROSCAR [Concomitant]
     Indication: DRUG USE FOR UNKNOWN INDICATION
     Dosage: 5 MG, QD
  9. NORVASC [Concomitant]
     Indication: DRUG USE FOR UNKNOWN INDICATION
     Dosage: 10 MG, QD
  10. GLUCOPHAGE [Concomitant]
     Indication: DRUG USE FOR UNKNOWN INDICATION
     Dosage: 300 MG, TID
  11. TOPROL-XL [Concomitant]
     Indication: DRUG USE FOR UNKNOWN INDICATION
     Dosage: 50 MG, QD

REACTIONS (1)
  - SUDDEN DEATH [None]
